FAERS Safety Report 9372706 (Version 1)
Quarter: 2013Q2

REPORT INFORMATION
  Report Type: Report from Study
  Country: US (occurrence: US)
  Receive Date: 20130627
  Receipt Date: 20130627
  Transmission Date: 20140414
  Serious: Yes (Hospitalization, Other)
  Sender: FDA-Public Use
  Company Number: US-MYLANLABS-2013S1006468

PATIENT
  Age: 58 Year
  Sex: Male
  Weight: 72.8 kg

DRUGS (10)
  1. CLOZAPINE TABLETS [Suspect]
     Indication: SCHIZOPHRENIA
     Route: 048
     Dates: start: 2010, end: 20130317
  2. CLOZAPINE TABLETS [Suspect]
     Indication: PSYCHOTIC DISORDER
     Route: 048
     Dates: start: 2010, end: 20130317
  3. CLOZAPINE TABLETS [Suspect]
     Indication: SCHIZOPHRENIA
     Route: 048
     Dates: start: 20130318, end: 20130319
  4. CLOZAPINE TABLETS [Suspect]
     Indication: PSYCHOTIC DISORDER
     Route: 048
     Dates: start: 20130318, end: 20130319
  5. RISPERDAL [Concomitant]
  6. ABILIFY [Concomitant]
  7. DOXYCYCLINE [Concomitant]
  8. ATIVAN [Concomitant]
  9. MINOCYCLINE [Concomitant]
  10. ARIPIPRAZOLE [Concomitant]

REACTIONS (3)
  - Granulocytopenia [Recovered/Resolved]
  - Leukopenia [Recovered/Resolved]
  - Psychotic disorder [Not Recovered/Not Resolved]
